FAERS Safety Report 17545755 (Version 1)
Quarter: 2020Q1

REPORT INFORMATION
  Report Type: Spontaneous
  Country: NL (occurrence: NL)
  Receive Date: 20200316
  Receipt Date: 20200316
  Transmission Date: 20200409
  Serious: Yes (Other)
  Sender: FDA-Public Use
  Company Number: NL-PFIZER INC-2020109766

PATIENT
  Sex: Male
  Weight: 106 kg

DRUGS (5)
  1. POSACONAZOL [Concomitant]
     Active Substance: POSACONAZOLE
     Dosage: 100 MG, UNK
  2. TEMAZEPAM. [Concomitant]
     Active Substance: TEMAZEPAM
     Dosage: 10 MG, UNK
  3. CYTARABINE. [Suspect]
     Active Substance: CYTARABINE
     Indication: ACUTE MYELOID LEUKAEMIA
     Dosage: UNK UNKNOWN
     Dates: start: 20200120
  4. HYPROMELLOSE [Concomitant]
     Active Substance: HYPROMELLOSES
     Dosage: 3 MG/ML, UNK
  5. COLISTINE DCI [Concomitant]
     Dosage: 200 MG, UNK

REACTIONS (1)
  - Toxic skin eruption [Unknown]
